FAERS Safety Report 6973792-5 (Version None)
Quarter: 2010Q3

REPORT INFORMATION
  Report Type: 
  Country: None (occurrence: None)
  Receive Date: 20100909
  Receipt Date: 20100907
  Transmission Date: 20110219
  Serious: Yes (Hospitalization)
  Sender: FDA-Public Use
  Company Number: A0879121A

PATIENT
  Age: 74 Year
  Sex: Male

DRUGS (6)
  1. ELTROMBOPAG [Suspect]
     Indication: ACUTE MYELOID LEUKAEMIA
     Dosage: 100MG PER DAY
     Route: 048
     Dates: start: 20100723, end: 20100823
  2. ALLOPURINOL [Concomitant]
  3. ATENOLOL [Concomitant]
  4. HYDREA [Concomitant]
  5. NORVASC [Concomitant]
  6. POTASSIUM [Concomitant]

REACTIONS (1)
  - ACUTE MYELOID LEUKAEMIA [None]
